FAERS Safety Report 20049796 (Version 4)
Quarter: 2022Q2

REPORT INFORMATION
  Report Type: Report from Study
  Country: KR (occurrence: KR)
  Receive Date: 20211109
  Receipt Date: 20220509
  Transmission Date: 20220721
  Serious: Yes (Hospitalization)
  Sender: FDA-Public Use
  Company Number: KR-ABBVIE-21K-090-4151472-00

PATIENT
  Sex: Female
  Weight: 49 kg

DRUGS (15)
  1. SKYRIZI [Suspect]
     Active Substance: RISANKIZUMAB-RZAA
     Indication: Psoriasis
     Dosage: ONCE
     Route: 058
     Dates: start: 20210721, end: 20210721
  2. SKYRIZI [Suspect]
     Active Substance: RISANKIZUMAB-RZAA
     Dosage: ONCE
     Route: 058
     Dates: start: 20210818, end: 20210818
  3. SKYRIZI [Suspect]
     Active Substance: RISANKIZUMAB-RZAA
     Dosage: ONCE
     Route: 058
     Dates: start: 20211103, end: 20211103
  4. SKYRIZI [Suspect]
     Active Substance: RISANKIZUMAB-RZAA
     Dosage: ONCE
     Route: 058
     Dates: start: 20220126, end: 20220126
  5. SKYRIZI [Suspect]
     Active Substance: RISANKIZUMAB-RZAA
     Dosage: ONCE
     Route: 058
     Dates: start: 20220427, end: 20220427
  6. BETAMETHASONE DIPROPIONATE\CALCIPOTRIENE HYDRATE [Concomitant]
     Active Substance: BETAMETHASONE DIPROPIONATE\CALCIPOTRIENE HYDRATE
     Indication: Psoriasis
     Dosage: APPLICATOR?PRN
     Route: 061
     Dates: start: 20190807, end: 20210731
  7. SYNTHROID [Concomitant]
     Active Substance: LEVOTHYROXINE SODIUM
     Indication: Hypothyroidism
     Route: 048
     Dates: start: 2011
  8. DONGKOO OMEGA 3 [Concomitant]
     Indication: Nutritional supplementation
     Dosage: SC
     Route: 048
     Dates: start: 2016
  9. ISONIAZID [Concomitant]
     Active Substance: ISONIAZID
     Indication: Latent tuberculosis
     Dosage: SHINPOONG ISONIAZID
     Route: 048
     Dates: start: 20210630, end: 20211214
  10. PYRIDOXINE SINIL [Concomitant]
     Indication: Latent tuberculosis
     Route: 048
     Dates: start: 20210630, end: 20211214
  11. AZD1222 [Concomitant]
     Indication: COVID-19 immunisation
     Route: 030
     Dates: start: 20210826, end: 20210826
  12. DISTEC [Concomitant]
     Indication: Prophylaxis
     Route: 058
     Dates: start: 20211025, end: 20211030
  13. ISOMERIC [Concomitant]
     Indication: Prophylaxis
     Route: 048
     Dates: start: 20211025, end: 20211030
  14. DIETARY SUPPLEMENT\HERBALS\MILK THISTLE [Concomitant]
     Active Substance: DIETARY SUPPLEMENT\HERBALS\MILK THISTLE
     Indication: Prophylaxis
     Dosage: MILK THISTLE DRY EXTRACT
     Route: 048
     Dates: start: 20211215, end: 20220125
  15. TOZINAMERAN [Concomitant]
     Active Substance: TOZINAMERAN
     Indication: COVID-19 immunisation
     Route: 030
     Dates: start: 20211222, end: 20211222

REACTIONS (2)
  - Radius fracture [Recovering/Resolving]
  - Hepatic function abnormal [Recovered/Resolved]

NARRATIVE: CASE EVENT DATE: 20211017
